FAERS Safety Report 17729277 (Version 1)
Quarter: 2020Q2

REPORT INFORMATION
  Report Type: Spontaneous
  Country: CN (occurrence: CN)
  Receive Date: 20200430
  Receipt Date: 20200430
  Transmission Date: 20200714
  Serious: Yes (Other)
  Sender: FDA-Public Use
  Company Number: CN-PFIZER INC-2020172666

PATIENT
  Age: 72 Year
  Sex: Male
  Weight: 60 kg

DRUGS (7)
  1. LOSARTAN POTASSIUM. [Concomitant]
     Active Substance: LOSARTAN POTASSIUM
     Indication: HYPERTENSION
     Dosage: 100 MG, 1X/DAY
     Route: 048
     Dates: start: 20200416, end: 20200427
  2. LIPITOR [Suspect]
     Active Substance: ATORVASTATIN CALCIUM
     Indication: ARTERIOSCLEROSIS
     Dosage: 20 MG, 1X/DAY
     Route: 048
     Dates: start: 20200418, end: 20200419
  3. A LE [Suspect]
     Active Substance: ATORVASTATIN CALCIUM
     Indication: ARTERIOSCLEROSIS
     Dosage: 20 MG, 1X/DAY
     Route: 048
     Dates: start: 20200416, end: 20200417
  4. RIVAROXABAN [Concomitant]
     Active Substance: RIVAROXABAN
     Indication: THROMBOSIS
     Dosage: 15 MG, 1X/DAY
     Route: 048
     Dates: start: 20200416, end: 20200427
  5. SPIRONOLACTONE. [Concomitant]
     Active Substance: SPIRONOLACTONE
     Indication: HYPERTENSION
     Dosage: 20 MG, 2X/DAY
     Route: 048
     Dates: start: 20200416, end: 20200427
  6. LEVOFLOXACIN LACTATE/SODIUM CHLORIDE [Concomitant]
     Indication: PNEUMONIA
     Dosage: 0.400 G, 1X/DAY
     Route: 041
     Dates: start: 20200416, end: 20200427
  7. DOXOFYLLINE/GLUCOSE [Concomitant]
     Indication: PNEUMONIA
     Dosage: 100 ML, 1X/DAY
     Route: 041
     Dates: start: 20200416, end: 20200424

REACTIONS (2)
  - Amylase increased [Recovering/Resolving]
  - Condition aggravated [Unknown]

NARRATIVE: CASE EVENT DATE: 20200420
